FAERS Safety Report 9439105 (Version 3)
Quarter: 2017Q1

REPORT INFORMATION
  Report Type: Report from Study
  Country: US (occurrence: US)
  Receive Date: 20130802
  Receipt Date: 20170217
  Transmission Date: 20170429
  Serious: Yes (Other)
  Sender: FDA-Public Use
  Company Number: US-ROCHE-1254951

PATIENT

DRUGS (7)
  1. IBOCTADEKIN [Suspect]
     Active Substance: IBOCTADEKIN
     Indication: NON-HODGKIN^S LYMPHOMA
     Dosage: ON DAY 2 OVER 2 HOURS
     Route: 042
  2. IBOCTADEKIN [Suspect]
     Active Substance: IBOCTADEKIN
     Dosage: ON DAY 2 OVER 2 HOURS
     Route: 042
  3. IBOCTADEKIN [Suspect]
     Active Substance: IBOCTADEKIN
     Dosage: ON DAY 2 OVER 2 HOURS
     Route: 042
  4. RITUXIMAB [Suspect]
     Active Substance: RITUXIMAB
     Indication: NON-HODGKIN^S LYMPHOMA
     Dosage: ON DAY 1
     Route: 042
  5. IBOCTADEKIN [Suspect]
     Active Substance: IBOCTADEKIN
     Dosage: ON DAY 2 OVER 2 HOURS
     Route: 042
  6. IBOCTADEKIN [Suspect]
     Active Substance: IBOCTADEKIN
     Dosage: ON DAY 2 OVER 2 HOURS
     Route: 042
  7. IBOCTADEKIN [Suspect]
     Active Substance: IBOCTADEKIN
     Dosage: ON DAY 2 OVER 2 HOURS
     Route: 042

REACTIONS (10)
  - Anaemia [Unknown]
  - Deep vein thrombosis [Unknown]
  - Hyperkalaemia [Unknown]
  - Blood bilirubin increased [Unknown]
  - Neutropenia [Unknown]
  - Lymphopenia [Unknown]
  - Hypoglycaemia [Unknown]
  - Confusional state [Unknown]
  - Hyperglycaemia [Unknown]
  - Hyponatraemia [Unknown]
